FAERS Safety Report 22003605 (Version 1)
Quarter: 2023Q1

REPORT INFORMATION
  Report Type: Spontaneous
  Country: US (occurrence: US)
  Receive Date: 20230217
  Receipt Date: 20230217
  Transmission Date: 20230418
  Serious: No
  Sender: FDA-Public Use
  Company Number: US-ABBVIE-4281151

PATIENT
  Sex: Male

DRUGS (3)
  1. HUMIRA [Suspect]
     Active Substance: ADALIMUMAB
     Indication: Chorioretinitis
     Route: 058
  2. BROMFENAC [Concomitant]
     Active Substance: BROMFENAC SODIUM
     Indication: Product used for unknown indication
  3. DUREZOL [Concomitant]
     Active Substance: DIFLUPREDNATE
     Indication: Product used for unknown indication

REACTIONS (2)
  - Retinal disorder [Unknown]
  - Drug level fluctuating [Unknown]
